FAERS Safety Report 5806057-5 (Version None)
Quarter: 2008Q3

REPORT INFORMATION
  Report Type: 
  Country: None (occurrence: None)
  Receive Date: 20080710
  Receipt Date: 20080707
  Transmission Date: 20090109
  Serious: Yes (Life-Threatening)
  Sender: FDA-Public Use
  Company Number: JP-ASTRAZENECA-2008AP04845

PATIENT
  Age: 16337 Day
  Sex: Female
  Weight: 51 kg

DRUGS (6)
  1. DIPRIVAN [Suspect]
     Indication: SEDATION
     Dosage: 360MG-6000MG/DAY
     Route: 041
     Dates: start: 20080421, end: 20080619
  2. DIPRIVAN [Suspect]
     Dosage: GENERIC PROPOFOL
     Route: 041
     Dates: start: 20080416, end: 20080416
  3. MENEST [Suspect]
     Indication: PARKINSON'S DISEASE
     Route: 048
     Dates: start: 20080528, end: 20080619
  4. SEVOFLURANE [Concomitant]
     Indication: GENERAL ANAESTHESIA
     Dosage: DOSE UNKNOWN
     Route: 055
     Dates: start: 20080416, end: 20080416
  5. TIENAM [Concomitant]
     Indication: PNEUMONIA
     Route: 042
     Dates: start: 20080505, end: 20080509
  6. FENTANEST [Concomitant]
     Indication: ANALGESIA
     Dosage: 1200??G/DAY
     Route: 041
     Dates: start: 20080601, end: 20080623

REACTIONS (1)
  - HYPERTHERMIA MALIGNANT [None]
